FAERS Safety Report 11457665 (Version 2)
Quarter: 2015Q3

REPORT INFORMATION
  Report Type: Spontaneous
  Country: RU (occurrence: RU)
  Receive Date: 20150904
  Receipt Date: 20150911
  Transmission Date: 20151125
  Serious: Yes (Other)
  Sender: FDA-Public Use
  Company Number: RU-WATSON-2015-18668

PATIENT
  Age: 67 Year
  Sex: Female
  Weight: 73 kg

DRUGS (5)
  1. GLYCINE. [Concomitant]
     Active Substance: GLYCINE
     Indication: PRODUCT USED FOR UNKNOWN INDICATION
     Dosage: UNK, UNKNOWN
     Route: 065
  2. VALZ [Suspect]
     Active Substance: VALSARTAN
     Dosage: 80 MG, DAILY
     Route: 048
  3. VALZ [Suspect]
     Active Substance: VALSARTAN
     Dosage: 160 MG, DAILY
     Route: 048
  4. VINPOCETINE [Concomitant]
     Active Substance: VINPOCETINE
     Indication: DIZZINESS
     Dosage: UNK, UNKNOWN
     Route: 065
  5. VALZ [Suspect]
     Active Substance: VALSARTAN
     Indication: HYPERTENSION
     Dosage: 120 MG, DAILY
     Route: 048

REACTIONS (5)
  - Cerebrovascular accident [Not Recovered/Not Resolved]
  - Chest discomfort [Not Recovered/Not Resolved]
  - Drug ineffective [Not Recovered/Not Resolved]
  - Heart rate decreased [Not Recovered/Not Resolved]
  - Dizziness [Not Recovered/Not Resolved]
